FAERS Safety Report 24197389 (Version 3)
Quarter: 2024Q3

REPORT INFORMATION
  Report Type: Report from Study
  Country: US (occurrence: US)
  Receive Date: 20240810
  Receipt Date: 20240925
  Transmission Date: 20241016
  Serious: Yes (Other)
  Sender: AIMMUNE
  Company Number: US-ZENPEP LLC-2024AIMT01018

PATIENT

DRUGS (2)
  1. ZENPEP [Suspect]
     Active Substance: PANCRELIPASE AMYLASE\PANCRELIPASE LIPASE\PANCRELIPASE PROTEASE
     Indication: Pancreatic failure
     Dosage: 40000-126000 UNIT CP
     Route: 048
     Dates: start: 20240508
  2. ZENPEP [Suspect]
     Active Substance: PANCRELIPASE AMYLASE\PANCRELIPASE LIPASE\PANCRELIPASE PROTEASE
     Dosage: 40000-126000 UNIT CP, ONCE, LAST DOSE PRIOR EVENT
     Route: 048

REACTIONS (5)
  - Haematochezia [Unknown]
  - Pancreatitis chronic [Unknown]
  - Hepatic cirrhosis [Unknown]
  - Dermal cyst [Unknown]
  - Pain [Unknown]

NARRATIVE: CASE EVENT DATE: 20240620
